FAERS Safety Report 10809710 (Version 1)
Quarter: 2015Q1

REPORT INFORMATION
  Report Type: Report from Study
  Country: US (occurrence: US)
  Receive Date: 20150217
  Receipt Date: 20150217
  Transmission Date: 20150721
  Serious: No
  Sender: FDA-Public Use
  Company Number: US-ABBVIE-14K-163-1267997-00

PATIENT
  Age: 19 Year
  Sex: Male

DRUGS (6)
  1. FLONASE [Concomitant]
     Active Substance: FLUTICASONE PROPIONATE
     Indication: SEASONAL ALLERGY
  2. HUMIRA [Suspect]
     Active Substance: ADALIMUMAB
     Indication: PSORIASIS
     Dates: start: 201401
  3. LISINOPRIL. [Concomitant]
     Active Substance: LISINOPRIL
     Indication: HYPERTENSION
  4. OTC ALLERGY MEDICATION [Concomitant]
     Indication: SEASONAL ALLERGY
  5. CLOBEX [Concomitant]
     Active Substance: CLOBETASOL PROPIONATE
     Indication: PSORIASIS
  6. HALOG [Concomitant]
     Active Substance: HALCINONIDE
     Indication: PSORIASIS

REACTIONS (5)
  - Injection site nodule [Recovered/Resolved]
  - Wrong technique in drug usage process [Unknown]
  - Underdose [Unknown]
  - Poor quality drug administered [Unknown]
  - Injection site discomfort [Unknown]

NARRATIVE: CASE EVENT DATE: 20140728
